FAERS Safety Report 10209316 (Version 3)
Quarter: 2014Q3

REPORT INFORMATION
  Report Type: Spontaneous
  Country: US (occurrence: US)
  Receive Date: 20140530
  Receipt Date: 20140929
  Transmission Date: 20150326
  Serious: Yes (Hospitalization, Other)
  Sender: FDA-Public Use
  Company Number: US-ABBVIE-14P-163-1240548-00

PATIENT
  Age: 83 Year
  Sex: Female
  Weight: 63.56 kg

DRUGS (10)
  1. UNSPECIFIED MEDICATION [Suspect]
     Active Substance: UNSPECIFIED INGREDIENT
     Indication: ATRIAL FIBRILLATION
     Dates: start: 2014
  2. TIKOSYN [Suspect]
     Active Substance: DOFETILIDE
     Indication: ATRIAL FIBRILLATION
     Route: 048
     Dates: start: 20140425
  3. LISINOPRIL. [Suspect]
     Active Substance: LISINOPRIL
     Indication: PRODUCT USED FOR UNKNOWN INDICATION
  4. WARFARIN [Concomitant]
     Active Substance: WARFARIN
     Indication: PRODUCT USED FOR UNKNOWN INDICATION
     Dates: start: 201404
  5. ERYTHROMYCIN. [Concomitant]
     Active Substance: ERYTHROMYCIN
     Indication: EYE DISORDER
     Route: 047
  6. SYNTHROID [Suspect]
     Active Substance: LEVOTHYROXINE SODIUM
     Indication: HYPOTHYROIDISM
     Dates: start: 1990
  7. CARDIZEM [Suspect]
     Active Substance: DILTIAZEM HYDROCHLORIDE
     Indication: PRODUCT USED FOR UNKNOWN INDICATION
  8. TIKOSYN [Suspect]
     Active Substance: DOFETILIDE
     Route: 048
     Dates: end: 20140527
  9. ZOCOR [Suspect]
     Active Substance: SIMVASTATIN
     Indication: PRODUCT USED FOR UNKNOWN INDICATION
  10. METOPROLOL [Concomitant]
     Active Substance: METOPROLOL
     Indication: ATRIAL FIBRILLATION

REACTIONS (23)
  - Hyperthyroidism [Unknown]
  - Retinal detachment [Recovered/Resolved]
  - Gait disturbance [Not Recovered/Not Resolved]
  - Blood pressure diastolic decreased [Unknown]
  - Drug level decreased [Unknown]
  - Thyroid neoplasm [Not Recovered/Not Resolved]
  - Fatigue [Not Recovered/Not Resolved]
  - Blood pressure systolic increased [Unknown]
  - Atrial fibrillation [Unknown]
  - Blindness [Not Recovered/Not Resolved]
  - Drug ineffective [Unknown]
  - Laboratory test abnormal [Unknown]
  - Eye haemorrhage [Unknown]
  - Cataract [Recovered/Resolved]
  - Arthralgia [Unknown]
  - Heart rate abnormal [Unknown]
  - Drug ineffective [Unknown]
  - Glucose tolerance impaired [Not Recovered/Not Resolved]
  - Heart rate decreased [Unknown]
  - Heart rate increased [Unknown]
  - Atrial fibrillation [Not Recovered/Not Resolved]
  - Salivary gland cancer [Unknown]
  - Joint warmth [Unknown]

NARRATIVE: CASE EVENT DATE: 1996
